FAERS Safety Report 5581419-2 (Version None)
Quarter: 2008Q1

REPORT INFORMATION
  Report Type: 
  Country: None (occurrence: None)
  Receive Date: 20080103
  Receipt Date: 20080103
  Transmission Date: 20080703
  Serious: Yes (Hospitalization, Other)
  Sender: FDA-Public Use
  Company Number: None

PATIENT
  Sex: Female
  Weight: 45.3597 kg

DRUGS (2)
  1. COMPAZINE [Suspect]
     Indication: NAUSEA
     Dosage: PO
     Route: 048
     Dates: start: 20070401, end: 20071229
  2. COMPAZINE [Suspect]
     Indication: URINARY TRACT INFECTION
     Dosage: PO
     Route: 048
     Dates: start: 20070401, end: 20071229

REACTIONS (10)
  - DELUSION [None]
  - DYSKINESIA [None]
  - DYSPNOEA [None]
  - FACIAL PAIN [None]
  - HALLUCINATION [None]
  - INSOMNIA [None]
  - MUSCLE TIGHTNESS [None]
  - PAIN IN JAW [None]
  - RESTLESS LEGS SYNDROME [None]
  - SUICIDAL IDEATION [None]
